FAERS Safety Report 13304461 (Version 1)
Quarter: 2017Q1

REPORT INFORMATION
  Report Type: Spontaneous
  Country: CA (occurrence: CA)
  Receive Date: 20170308
  Receipt Date: 20170308
  Transmission Date: 20170428
  Serious: Yes (Hospitalization)
  Sender: FDA-Public Use
  Company Number: CA-TEVA-746309ACC

PATIENT
  Age: 2 Year
  Sex: Female
  Weight: 17 kg

DRUGS (1)
  1. NOVO-TRIMEL ORAL SUS [Suspect]
     Active Substance: SULFAMETHOXAZOLE\TRIMETHOPRIM
     Indication: IMPETIGO
     Dosage: 16 ML DAILY;
     Route: 048

REACTIONS (4)
  - Pyrexia [Recovering/Resolving]
  - Stevens-Johnson syndrome [Recovering/Resolving]
  - Mucocutaneous rash [Recovering/Resolving]
  - Malaise [Recovering/Resolving]
